FAERS Safety Report 5890873-8 (Version None)
Quarter: 2008Q3

REPORT INFORMATION
  Report Type: 
  Country: None (occurrence: None)
  Receive Date: 20080917
  Receipt Date: 20080917
  Transmission Date: 20090109
  Serious: No
  Sender: FDA-Public Use
  Company Number: None

PATIENT
  Age: 10 Year
  Sex: Female

DRUGS (1)
  1. PROPARACAINE HCL [Suspect]
     Indication: OPHTHALMOLOGICAL EXAMINATION
     Dates: start: 20080728, end: 20080728

REACTIONS (4)
  - DIZZINESS [None]
  - HEART RATE INCREASED [None]
  - HYPERHIDROSIS [None]
  - PARAESTHESIA [None]
